FAERS Safety Report 12991165 (Version 3)
Quarter: 2016Q4

REPORT INFORMATION
  Report Type: Spontaneous
  Country: FR (occurrence: FR)
  Receive Date: 20161201
  Receipt Date: 20161219
  Transmission Date: 20170207
  Serious: Yes (Death, Hospitalization)
  Sender: FDA-Public Use
  Company Number: FR-INCYTE CORPORATION-2016IN007639

PATIENT
  Age: 69 Year
  Sex: Male

DRUGS (5)
  1. JAKAVI [Suspect]
     Active Substance: RUXOLITINIB
     Indication: POLYCYTHAEMIA VERA
     Dosage: 15 MG, BID (1 DF BID)
     Route: 048
     Dates: start: 20151001
  2. ALLOPURINOL. [Concomitant]
     Active Substance: ALLOPURINOL
     Indication: PRODUCT USED FOR UNKNOWN INDICATION
     Dosage: 1 DF, QD
     Route: 048
     Dates: start: 20131202
  3. ASPEGIC [Suspect]
     Active Substance: ASPIRIN DL-LYSINE
     Indication: PERICARDITIS
     Dosage: 1000 U, UNK
     Route: 065
     Dates: start: 20160908
  4. COLCHIMAX                          /01722001/ [Suspect]
     Active Substance: COLCHICINE\OPIUM\TIEMONIUM METHYLSULFATE
     Indication: PERICARDITIS
     Route: 065
  5. HYDREA [Concomitant]
     Active Substance: HYDROXYUREA
     Indication: POLYCYTHAEMIA VERA
     Dosage: 2 DF, QD
     Route: 048
     Dates: start: 20151202

REACTIONS (7)
  - Fall [Fatal]
  - Polycythaemia vera [Not Recovered/Not Resolved]
  - Craniocerebral injury [Fatal]
  - Weight decreased [Unknown]
  - Asthenia [Unknown]
  - Pericarditis [Recovered/Resolved]
  - Diarrhoea [Unknown]

NARRATIVE: CASE EVENT DATE: 201609
